FAERS Safety Report 18890140 (Version 2)
Quarter: 2021Q2

REPORT INFORMATION
  Report Type: Spontaneous
  Country: US (occurrence: US)
  Receive Date: 20210214
  Receipt Date: 20210408
  Transmission Date: 20210717
  Serious: No
  Sender: FDA-Public Use
  Company Number: US-ASTRAZENECA-2021A051188

PATIENT
  Sex: Female

DRUGS (1)
  1. BYDUREON BCISE [Suspect]
     Active Substance: EXENATIDE
     Indication: DIABETES MELLITUS
     Route: 058

REACTIONS (7)
  - Intentional device misuse [Unknown]
  - Blood glucose increased [Recovering/Resolving]
  - Injection site pain [Unknown]
  - Injection site bruising [Recovered/Resolved]
  - Incorrect dose administered by device [Unknown]
  - Device leakage [Unknown]
  - Tenderness [Unknown]
